FAERS Safety Report 10234283 (Version 1)
Quarter: 2014Q2

REPORT INFORMATION
  Report Type: Spontaneous
  Country: CA (occurrence: CA)
  Receive Date: 20140612
  Receipt Date: 20140612
  Transmission Date: 20141212
  Serious: Yes (Other)
  Sender: FDA-Public Use
  Company Number: PHHY2014CA068681

PATIENT
  Age: 32 Year
  Sex: Female

DRUGS (4)
  1. MORPHINE SULFATE SANDOZ [Suspect]
     Route: 042
  2. NICOTINE [Suspect]
  3. HEROIN [Suspect]
  4. DILAUDID [Suspect]
     Route: 030

REACTIONS (2)
  - Drug dependence [Unknown]
  - Substance abuse [Unknown]
